FAERS Safety Report 16344476 (Version 1)
Quarter: 2019Q2

REPORT INFORMATION
  Report Type: Spontaneous
  Country: CN (occurrence: CN)
  Receive Date: 20190522
  Receipt Date: 20190522
  Transmission Date: 20190711
  Serious: Yes (Hospitalization, Other)
  Sender: FDA-Public Use
  Company Number: CN-ELI_LILLY_AND_COMPANY-CN201905005245

PATIENT
  Sex: Female
  Weight: 61 kg

DRUGS (2)
  1. ESCITALOPRAM OXALATE. [Suspect]
     Active Substance: ESCITALOPRAM OXALATE
     Indication: SOMATIC SYMPTOM DISORDER
     Dosage: 15 MG, DAILY
     Route: 048
     Dates: start: 20190401, end: 20190510
  2. ZYPREXA [Suspect]
     Active Substance: OLANZAPINE
     Indication: SOMATIC SYMPTOM DISORDER
     Dosage: 3.75 MG, DAILY
     Route: 048
     Dates: start: 20190401, end: 20190420

REACTIONS (10)
  - Tinnitus [Recovered/Resolved]
  - Headache [Not Recovered/Not Resolved]
  - Depression [Not Recovered/Not Resolved]
  - Somatic symptom disorder [Unknown]
  - Restlessness [Recovered/Resolved]
  - Off label use [Recovered/Resolved]
  - Dizziness [Not Recovered/Not Resolved]
  - Anxiety [Not Recovered/Not Resolved]
  - Affect lability [Not Recovered/Not Resolved]
  - Asthenia [Not Recovered/Not Resolved]

NARRATIVE: CASE EVENT DATE: 20190401
